FAERS Safety Report 10790490 (Version 7)
Quarter: 2015Q1

REPORT INFORMATION
  Report Type: Report from Study
  Country: AU (occurrence: AU)
  Receive Date: 20150212
  Receipt Date: 20150327
  Transmission Date: 20150721
  Serious: Yes (Death, Hospitalization, Other)
  Sender: FDA-Public Use
  Company Number: AU-ABBVIE-14P-008-1316252-00

PATIENT
  Age: 64 Year
  Sex: Male

DRUGS (3)
  1. DUODOPA [Suspect]
     Active Substance: CARBIDOPA\LEVODOPA
     Indication: PARKINSON^S DISEASE
     Route: 050
  2. DUODOPA [Suspect]
     Active Substance: CARBIDOPA\LEVODOPA
     Dosage: DECREASED RATE
     Route: 050
  3. DUODOPA [Suspect]
     Active Substance: CARBIDOPA\LEVODOPA
     Route: 065
     Dates: start: 20150218

REACTIONS (14)
  - General physical health deterioration [Unknown]
  - Intestinal perforation [Unknown]
  - Metastases to liver [Unknown]
  - Intestinal obstruction [Not Recovered/Not Resolved]
  - Gastrointestinal carcinoma [Unknown]
  - Metastases to lung [Unknown]
  - Stoma site pain [Not Recovered/Not Resolved]
  - Fatigue [Not Recovered/Not Resolved]
  - Weight decreased [Not Recovered/Not Resolved]
  - Asthenia [Not Recovered/Not Resolved]
  - Colon cancer metastatic [Fatal]
  - Emotional distress [Unknown]
  - Infection [Unknown]
  - Weight decreased [Unknown]

NARRATIVE: CASE EVENT DATE: 20150321
